FAERS Safety Report 11636627 (Version 2)
Quarter: 2015Q4

REPORT INFORMATION
  Report Type: Spontaneous
  Country: US (occurrence: None)
  Receive Date: 20151016
  Receipt Date: 20151020
  Transmission Date: 20160304
  Serious: Yes (Other)
  Sender: FDA-Public Use
  Company Number: US-MDT-ADR-2015-01969

PATIENT
  Age: 44 Year
  Sex: Male

DRUGS (1)
  1. LIORESAL [Suspect]
     Active Substance: BACLOFEN
     Dosage: 668.9 MCG/DAY

REACTIONS (4)
  - Muscle spasticity [None]
  - Malaise [None]
  - Cerebrospinal fluid leakage [None]
  - Vomiting [None]
